APPROVED DRUG PRODUCT: BONIVA
Active Ingredient: IBANDRONATE SODIUM
Strength: EQ 3MG BASE/3ML **Federal Register determination that product was not discontinued or withdrawn for safety or effectiveness reasons**
Dosage Form/Route: INJECTABLE;INTRAVENOUS
Application: N021858 | Product #001
Applicant: HOFFMANN LA ROCHE INC
Approved: Jan 6, 2006 | RLD: Yes | RS: No | Type: DISCN